FAERS Safety Report 12899801 (Version 1)
Quarter: 2016Q4

REPORT INFORMATION
  Report Type: Spontaneous
  Country: US (occurrence: US)
  Receive Date: 20161101
  Receipt Date: 20161101
  Transmission Date: 20170207
  Serious: No
  Sender: FDA-Public Use
  Company Number: US-PFIZER INC-2016502912

PATIENT
  Age: 46 Year
  Sex: Female
  Weight: 111 kg

DRUGS (1)
  1. CELEBREX [Suspect]
     Active Substance: CELECOXIB
     Indication: BACK PAIN
     Dosage: UNK
     Dates: start: 2006

REACTIONS (1)
  - Drug ineffective [Unknown]
